FAERS Safety Report 21965659 (Version 3)
Quarter: 2024Q1

REPORT INFORMATION
  Report Type: Spontaneous
  Country: CA (occurrence: CA)
  Receive Date: 20230208
  Receipt Date: 20240317
  Transmission Date: 20240410
  Serious: Yes (Other)
  Sender: FDA-Public Use
  Company Number: CA-JNJFOC-20230209386

PATIENT
  Age: 69 Year
  Sex: Female

DRUGS (1)
  1. ELMIRON [Suspect]
     Active Substance: PENTOSAN POLYSULFATE SODIUM
     Indication: Cystitis interstitial
     Route: 048
     Dates: end: 20200414

REACTIONS (2)
  - Choroidal neovascularisation [Recovering/Resolving]
  - Maculopathy [Unknown]

NARRATIVE: CASE EVENT DATE: 20200101
